FAERS Safety Report 5627265-2 (Version None)
Quarter: 2008Q1

REPORT INFORMATION
  Report Type: 
  Country: None (occurrence: None)
  Receive Date: 20080129
  Receipt Date: 20070405
  Transmission Date: 20080703
  Serious: Yes (Other)
  Sender: FDA-Public Use
  Company Number: 8023048

PATIENT
  Age: 59 Year
  Sex: Male
  Weight: 68.04 kg

DRUGS (6)
  1. KEPPRA [Suspect]
     Indication: CONVULSION
     Dosage: 250 MG 2/D PO
     Route: 048
     Dates: start: 20060101
  2. KEPPRA [Suspect]
     Indication: GRAND MAL CONVULSION
     Dosage: 250 MG 2/D PO
     Route: 048
     Dates: start: 20060101
  3. KEPPRA [Suspect]
     Indication: NYSTAGMUS
     Dosage: 250 MG 2/D PO
     Route: 048
     Dates: start: 20060101
  4. NEURONTIN [Concomitant]
  5. LAMICTAL [Concomitant]
  6. ZONISAMIDE [Concomitant]

REACTIONS (9)
  - AGGRESSION [None]
  - AMNESIA [None]
  - ANGER [None]
  - ANOREXIA [None]
  - ARTHRALGIA [None]
  - CHEST DISCOMFORT [None]
  - GAIT DISTURBANCE [None]
  - HOSTILITY [None]
  - MYALGIA [None]
